FAERS Safety Report 17987786 (Version 1)
Quarter: 2020Q3

REPORT INFORMATION
  Report Type: Report from Study
  Country: IT (occurrence: IT)
  Receive Date: 20200707
  Receipt Date: 20200707
  Transmission Date: 20201103
  Serious: Yes (Other)
  Sender: FDA-Public Use
  Company Number: NVSC2020IT179886

PATIENT
  Age: 65 Year
  Sex: Male
  Weight: 87 kg

DRUGS (9)
  1. ENBREL [Concomitant]
     Active Substance: ETANERCEPT
     Indication: PRODUCT USED FOR UNKNOWN INDICATION
     Dosage: UNK
     Route: 058
     Dates: start: 2014, end: 201905
  2. QUTIAPINE [Concomitant]
     Indication: DEPRESSION
     Dosage: UNK
     Route: 048
  3. IBANDRONIC ACID. [Concomitant]
     Active Substance: IBANDRONIC ACID
     Indication: OSTEOPOROSIS
     Dosage: UNK
     Route: 048
  4. OMEGA?3 FATTY ACIDS [Concomitant]
     Active Substance: OMEGA-3 FATTY ACIDS
     Indication: HYPERLIPIDAEMIA
     Dosage: UNK
     Route: 048
  5. ACETYLSALICYLIC ACID [Concomitant]
     Active Substance: ASPIRIN
     Indication: GENERAL PHYSICAL HEALTH DETERIORATION
     Dosage: UNK
     Route: 048
  6. BISOPROLOL [Concomitant]
     Active Substance: BISOPROLOL
     Indication: GENERAL PHYSICAL HEALTH DETERIORATION
     Dosage: UNK
     Route: 048
  7. CALCIUM CHOLECALCIFEROL BERES [Concomitant]
     Active Substance: CALCIUM CARBONATE\CHOLECALCIFEROL
     Indication: OSTEOPOROSIS
     Dosage: UNK
     Route: 048
  8. ERELZI [Suspect]
     Active Substance: ETANERCEPT-SZZS
     Indication: RHEUMATOID ARTHRITIS
     Dosage: 50 MG, QW
     Route: 065
     Dates: start: 20190531, end: 201912
  9. EZETIMIBE. [Concomitant]
     Active Substance: EZETIMIBE
     Indication: HYPERLIPIDAEMIA
     Dosage: UNK
     Route: 048

REACTIONS (17)
  - Musculoskeletal stiffness [Unknown]
  - Pain [Unknown]
  - Arthralgia [Unknown]
  - Gait disturbance [Unknown]
  - Fatigue [Unknown]
  - Joint swelling [Unknown]
  - Sleep disorder [Unknown]
  - Neoplasm malignant [Not Recovered/Not Resolved]
  - Bladder neoplasm [Unknown]
  - Back pain [Unknown]
  - Illness [Unknown]
  - Neck pain [Unknown]
  - Discomfort [Unknown]
  - Asthenia [Unknown]
  - Spondylitis [Unknown]
  - Tenderness [Unknown]
  - Depression [Unknown]

NARRATIVE: CASE EVENT DATE: 201912
